FAERS Safety Report 4627774-9 (Version None)
Quarter: 2005Q2

REPORT INFORMATION
  Report Type: 
  Country: None (occurrence: None)
  Receive Date: 20050401
  Receipt Date: 20030915
  Transmission Date: 20051028
  Serious: No
  Sender: FDA-Public Use
  Company Number: 6130

PATIENT
  Age: 52 Year
  Sex: Male

DRUGS (1)
  1. MIDAZOLAM HCL [Suspect]

REACTIONS (1)
  - PSYCHOTIC DISORDER [None]
